FAERS Safety Report 25947511 (Version 1)
Quarter: 2025Q4

REPORT INFORMATION
  Report Type: Spontaneous
  Country: PE (occurrence: PE)
  Receive Date: 20251022
  Receipt Date: 20251022
  Transmission Date: 20260118
  Serious: Yes (Disabling)
  Sender: ROCHE
  Company Number: PE-ROCHE-10000413386

PATIENT
  Age: 79 Year
  Sex: Male

DRUGS (1)
  1. AVASTIN [Suspect]
     Active Substance: BEVACIZUMAB
     Indication: Eye disorder
     Dosage: FREQUENCY WAS NOT REPORTED
     Route: 042
     Dates: start: 2023

REACTIONS (3)
  - Off label use [Unknown]
  - Iris disorder [Unknown]
  - Eye haemorrhage [Unknown]
